FAERS Safety Report 9130770 (Version 2)
Quarter: 2013Q2

REPORT INFORMATION
  Report Type: Spontaneous
  Country: US (occurrence: US)
  Receive Date: 20130301
  Receipt Date: 20130515
  Transmission Date: 20140414
  Serious: Yes (Other)
  Sender: FDA-Public Use
  Company Number: PHEH2013US004828

PATIENT
  Sex: Male

DRUGS (7)
  1. EXELON PATCH [Suspect]
     Dosage: 9.5 MG QD
     Route: 062
  2. ASPIRIN [Concomitant]
     Dosage: 81 MG UNK
  3. OXYBUTYNIN [Concomitant]
  4. GERITOL                                 /CAN/ [Concomitant]
  5. METOPROLOL [Concomitant]
  6. ATORVASTATIN [Concomitant]
  7. LOTREL [Concomitant]

REACTIONS (1)
  - Hallucination [Unknown]
